FAERS Safety Report 7151883-6 (Version None)
Quarter: 2010Q4

REPORT INFORMATION
  Report Type: 
  Country: None (occurrence: None)
  Receive Date: 20101210
  Receipt Date: 20101203
  Transmission Date: 20110411
  Serious: Yes (Death, Life-Threatening, Disabling)
  Sender: FDA-Public Use
  Company Number: JP-ABBOTT-10P-087-0673158-00

PATIENT
  Sex: Male
  Weight: 46 kg

DRUGS (12)
  1. CEFZON [Suspect]
     Indication: NASOPHARYNGITIS
     Route: 048
     Dates: start: 20100804, end: 20100805
  2. TACROLIMUS [Suspect]
     Indication: RHEUMATOID ARTHRITIS
     Route: 048
     Dates: start: 20100410, end: 20100423
  3. TACROLIMUS [Suspect]
     Route: 048
     Dates: start: 20100424, end: 20100507
  4. TACROLIMUS [Suspect]
     Route: 048
     Dates: start: 20100508, end: 20100521
  5. TACROLIMUS [Suspect]
     Route: 048
     Dates: start: 20100522, end: 20100611
  6. TACROLIMUS [Suspect]
     Route: 048
     Dates: start: 20100612
  7. PL GRAN. [Suspect]
     Indication: NASOPHARYNGITIS
     Route: 048
     Dates: start: 20100804, end: 20100805
  8. ACETYLSALICYLIC ACID [Concomitant]
     Indication: PRODUCT USED FOR UNKNOWN INDICATION
     Route: 048
  9. OMEPRAL [Concomitant]
     Indication: PRODUCT USED FOR UNKNOWN INDICATION
     Route: 048
  10. FUROSEMIDE [Concomitant]
     Indication: PRODUCT USED FOR UNKNOWN INDICATION
     Route: 048
  11. MOBIC [Concomitant]
     Indication: PRODUCT USED FOR UNKNOWN INDICATION
     Route: 048
  12. FORSENID [Concomitant]
     Indication: PRODUCT USED FOR UNKNOWN INDICATION
     Route: 048

REACTIONS (4)
  - APLASTIC ANAEMIA [None]
  - INFECTION [None]
  - PANCYTOPENIA [None]
  - STEVENS-JOHNSON SYNDROME [None]
